FAERS Safety Report 6315833-4 (Version None)
Quarter: 2009Q3

REPORT INFORMATION
  Report Type: 
  Country: None (occurrence: None)
  Receive Date: 20090820
  Receipt Date: 20070613
  Transmission Date: 20100115
  Serious: Yes (Hospitalization, Other)
  Sender: FDA-Public Use
  Company Number: US-ASTRAZENECA-2006UW06093

PATIENT
  Age: 11593 Day
  Sex: Male
  Weight: 90.7 kg

DRUGS (7)
  1. SEROQUEL [Suspect]
     Indication: SCHIZOPHRENIA
     Route: 048
     Dates: start: 20010401, end: 20051220
  2. SEROQUEL [Suspect]
     Dosage: 100 MG - 300 MG
     Route: 048
     Dates: start: 20020416
  3. GEODON [Concomitant]
     Dates: start: 20051201
  4. RISPERDAL [Concomitant]
     Dates: start: 20000401, end: 20020401
  5. RISPERDAL [Concomitant]
     Dates: start: 20011120
  6. LIPITOR [Concomitant]
     Route: 048
     Dates: start: 20051001
  7. LOPID [Concomitant]
     Dates: start: 20051001

REACTIONS (5)
  - ALCOHOLIC PANCREATITIS [None]
  - PANCREATITIS [None]
  - PANCREATITIS ACUTE [None]
  - PANCREATITIS CHRONIC [None]
  - SKIN LACERATION [None]
